FAERS Safety Report 24281376 (Version 1)
Quarter: 2024Q3

REPORT INFORMATION
  Report Type: Spontaneous
  Country: US (occurrence: US)
  Receive Date: 20240904
  Receipt Date: 20240904
  Transmission Date: 20241016
  Serious: No
  Sender: BAYER
  Company Number: US-BAYER-2024A126346

PATIENT
  Age: 52 Year
  Sex: Female

DRUGS (4)
  1. KOVALTRY [Suspect]
     Active Substance: ANTIHEMOPHILIC FACTOR, HUMAN RECOMBINANT
     Indication: Factor VIII deficiency
     Dosage: UNK
     Route: 042
     Dates: start: 202403
  2. KOVALTRY [Suspect]
     Active Substance: ANTIHEMOPHILIC FACTOR, HUMAN RECOMBINANT
     Indication: Factor VIII deficiency
     Dosage: STRENGTH 1000;INFUSE 3500 UNITS (3150-3850) SLOW IV PUSH
     Route: 042
     Dates: start: 20240407, end: 20240407
  3. VONVENDI [Concomitant]
     Active Substance: VON WILLEBRAND FACTOR (RECOMBINANT)
     Dosage: INFUSE 2175 UNITS (1958-2392) SLOW IV PUSH ONCE AS NEEDED
     Route: 042
  4. SODIUM CHLORIDE [Concomitant]
     Active Substance: SODIUM CHLORIDE
     Dosage: 10 ML

REACTIONS (6)
  - Endometrial ablation [None]
  - Vaginal haemorrhage [Recovered/Resolved]
  - Vaginal discharge [None]
  - Menstruation irregular [None]
  - Abdominal distension [None]
  - Uterine spasm [None]

NARRATIVE: CASE EVENT DATE: 20240406
